FAERS Safety Report 10807012 (Version 1)
Quarter: 2015Q1

REPORT INFORMATION
  Report Type: Report from Study
  Country: US (occurrence: US)
  Receive Date: 20150217
  Receipt Date: 20150217
  Transmission Date: 20150721
  Serious: No
  Sender: FDA-Public Use
  Company Number: US-ABBVIE-14K-163-1258544-00

PATIENT
  Sex: Male

DRUGS (5)
  1. DIAZEPIN [Concomitant]
     Indication: ABDOMINAL PAIN UPPER
  2. NEXIUM [Concomitant]
     Active Substance: ESOMEPRAZOLE MAGNESIUM
     Indication: GASTROOESOPHAGEAL REFLUX DISEASE
  3. HUMIRA [Suspect]
     Active Substance: ADALIMUMAB
     Indication: CROHN^S DISEASE
     Dates: start: 20140511
  4. REQUIP [Concomitant]
     Active Substance: ROPINIROLE HYDROCHLORIDE
     Indication: RESTLESS LEGS SYNDROME
  5. DIAZEPIN [Concomitant]
     Indication: ABDOMINAL RIGIDITY

REACTIONS (1)
  - Inappropriate schedule of drug administration [Not Recovered/Not Resolved]
